FAERS Safety Report 4751450-5 (Version None)
Quarter: 2005Q3

REPORT INFORMATION
  Report Type: 
  Country: None (occurrence: None)
  Receive Date: 20050824
  Receipt Date: 20050810
  Transmission Date: 20060218
  Serious: Yes (Other)
  Sender: FDA-Public Use
  Company Number: BR-MERCK-0508BRA00034

PATIENT
  Age: 45 Year
  Sex: Male

DRUGS (2)
  1. INDOCIN [Suspect]
     Indication: SPONDYLITIS
     Route: 048
     Dates: start: 19750101
  2. [THERAPY UNSPECIFIED] [Concomitant]
     Indication: HYPERTENSION
     Route: 065

REACTIONS (1)
  - BLINDNESS [None]
